FAERS Safety Report 5690319-9 (Version None)
Quarter: 2008Q1

REPORT INFORMATION
  Report Type: 
  Country: None (occurrence: None)
  Receive Date: 20080331
  Receipt Date: 20080331
  Transmission Date: 20080703
  Serious: Yes (Other)
  Sender: FDA-Public Use
  Company Number: None

PATIENT
  Age: 29 Year
  Sex: Male
  Weight: 129.2752 kg

DRUGS (1)
  1. ACETAMINOPHEN AND HYDROCODONE BITARTRATE [Suspect]
     Indication: PROCEDURAL PAIN
     Dosage: 325M 3 TIMES DAILY PO
     Route: 048
     Dates: start: 20080219, end: 20080329

REACTIONS (4)
  - DIZZINESS POSTURAL [None]
  - DYSPNOEA [None]
  - VISION BLURRED [None]
  - VOMITING [None]
